FAERS Safety Report 14390240 (Version 2)
Quarter: 2018Q1

REPORT INFORMATION
  Report Type: Spontaneous
  Country: TR (occurrence: TR)
  Receive Date: 20180116
  Receipt Date: 20180308
  Transmission Date: 20180509
  Serious: No
  Sender: FDA-Public Use
  Company Number: TR-AMGEN-TURSP2016167805

PATIENT
  Age: 10 Year
  Sex: Female

DRUGS (4)
  1. XGEVA [Suspect]
     Active Substance: DENOSUMAB
     Indication: ANEURYSMAL BONE CYST
     Dosage: 70 MG/M2, QWK
     Route: 065
  2. VITAMIN D [Concomitant]
     Active Substance: CHOLECALCIFEROL
     Dosage: 800 IU, QD
  3. XGEVA [Suspect]
     Active Substance: DENOSUMAB
     Dosage: 70 MG/M2, QMO
     Route: 065
  4. CALCIUM [Concomitant]
     Active Substance: CALCIUM
     Dosage: 500-1,000 MG, QD

REACTIONS (1)
  - Off label use [Unknown]
